FAERS Safety Report 9769607 (Version 1)
Quarter: 2013Q4

REPORT INFORMATION
  Report Type: Spontaneous
  Country: US (occurrence: US)
  Receive Date: 20131218
  Receipt Date: 20131218
  Transmission Date: 20140711
  Serious: Yes (Hospitalization)
  Sender: FDA-Public Use
  Company Number: US-UCBSA-105699

PATIENT
  Age: 78 Year
  Sex: Male

DRUGS (2)
  1. CIMZIA [Suspect]
     Indication: RHEUMATOID ARTHRITIS
     Dosage: STRENGTH : 200 MG
     Route: 058
     Dates: start: 20120216, end: 20131120
  2. LASIX [Concomitant]
     Dosage: DOSE UNSPECIFIED

REACTIONS (2)
  - Cardiac failure congestive [Unknown]
  - Pulmonary oedema [Unknown]
